FAERS Safety Report 12468968 (Version 1)
Quarter: 2016Q2

REPORT INFORMATION
  Report Type: Report from Study
  Country: CA (occurrence: CA)
  Receive Date: 20160615
  Receipt Date: 20160615
  Transmission Date: 20160815
  Serious: Yes (Death, Other)
  Sender: FDA-Public Use
  Company Number: CA-GILEAD-2016-0191582

PATIENT
  Age: 77 Year
  Sex: Male

DRUGS (4)
  1. ADALAT [Concomitant]
     Active Substance: NIFEDIPINE
     Dosage: 30 MG, UNK
     Route: 065
  2. RAMIPRIL. [Concomitant]
     Active Substance: RAMIPRIL
     Indication: HYPERTENSION
     Dosage: 7.5 MG, UNK
     Dates: start: 20151221
  3. ZYDELIG [Suspect]
     Active Substance: IDELALISIB
     Indication: CHRONIC LYMPHOCYTIC LEUKAEMIA
     Dosage: 150 MG, BID
     Route: 048
     Dates: start: 20151221, end: 20160104
  4. ZYDELIG [Suspect]
     Active Substance: IDELALISIB
     Dosage: 100 MG, BID
     Route: 048
     Dates: start: 20160120, end: 2016

REACTIONS (5)
  - Neutropenia [Recovered/Resolved]
  - Diarrhoea [Recovered/Resolved]
  - Weight decreased [Unknown]
  - Death [Fatal]
  - White blood cell count abnormal [Recovered/Resolved]

NARRATIVE: CASE EVENT DATE: 201512
